FAERS Safety Report 9344595 (Version 1)
Quarter: 2013Q2

REPORT INFORMATION
  Report Type: Spontaneous
  Country: US (occurrence: None)
  Receive Date: 20130611
  Receipt Date: 20130611
  Transmission Date: 20140414
  Serious: Yes (Hospitalization)
  Sender: FDA-Public Use
  Company Number: None

PATIENT
  Age: 27 Year
  Sex: Female
  Weight: 79.5 kg

DRUGS (1)
  1. CLINDAMYCIN [Suspect]
     Indication: TOOTH ABSCESS
     Route: 048
     Dates: start: 20130525, end: 20130608

REACTIONS (7)
  - Rash [None]
  - Diarrhoea [None]
  - Nausea [None]
  - Vomiting [None]
  - Tachycardia [None]
  - Eye swelling [None]
  - Local swelling [None]
